FAERS Safety Report 7720299-3 (Version None)
Quarter: 2011Q3

REPORT INFORMATION
  Report Type: 
  Country: None (occurrence: None)
  Receive Date: 20110831
  Receipt Date: 20110818
  Transmission Date: 20111222
  Serious: No
  Sender: FDA-Public Use
  Company Number: JP-UCBSA-037155

PATIENT
  Sex: Female
  Weight: 42 kg

DRUGS (3)
  1. DEPAKENE [Concomitant]
     Route: 048
     Dates: start: 20110610
  2. TEGRETOL [Concomitant]
     Route: 048
     Dates: start: 20110610
  3. KEPPRA [Suspect]
     Indication: PETIT MAL EPILEPSY
     Route: 048
     Dates: start: 20110617

REACTIONS (1)
  - HEARING IMPAIRED [None]
